FAERS Safety Report 8560459-5 (Version None)
Quarter: 2012Q3

REPORT INFORMATION
  Report Type: 
  Country: None (occurrence: None)
  Receive Date: 20120802
  Receipt Date: 20120726
  Transmission Date: 20120928
  Serious: Yes (Death, Other)
  Sender: FDA-Public Use
  Company Number: US-INCYTE CORPORATION-2012IN000603

PATIENT
  Sex: Male

DRUGS (9)
  1. IRON [Concomitant]
     Indication: SUPPLEMENTATION THERAPY
  2. PROSCAR [Concomitant]
  3. JAKAFI [Suspect]
     Indication: MYELOFIBROSIS
     Dosage: 20 MG, BID
     Route: 048
     Dates: start: 20120301
  4. DIGOXIN [Concomitant]
  5. LASIX [Concomitant]
  6. ALBUTEROL [Concomitant]
  7. ALLOPURINOL [Concomitant]
  8. FLOMAX [Concomitant]
  9. COREG [Concomitant]

REACTIONS (4)
  - MALAISE [None]
  - DISEASE PROGRESSION [None]
  - NEOPLASM MALIGNANT [None]
  - POST PROCEDURAL INFECTION [None]
